FAERS Safety Report 9124760 (Version 1)
Quarter: 2013Q1

REPORT INFORMATION
  Report Type: Spontaneous
  Country: ES (occurrence: ES)
  Receive Date: 20130227
  Receipt Date: 20130227
  Transmission Date: 20140127
  Serious: Yes (Other)
  Sender: FDA-Public Use
  Company Number: ES-ELI_LILLY_AND_COMPANY-ES201302003296

PATIENT
  Age: 78 Year
  Sex: Female

DRUGS (2)
  1. FORSTEO [Suspect]
     Dosage: UNK, UNKNOWN
     Route: 065
  2. FORSTEO [Suspect]
     Dosage: UNK, UNKNOWN
     Route: 065

REACTIONS (6)
  - Optic nerve injury [Unknown]
  - Arterial injury [Unknown]
  - Paralysis [Unknown]
  - Fall [Unknown]
  - Skull fracture [Unknown]
  - Malaise [Unknown]
